FAERS Safety Report 11820799 (Version 3)
Quarter: 2016Q4

REPORT INFORMATION
  Report Type: Spontaneous
  Country: US (occurrence: US)
  Receive Date: 20151210
  Receipt Date: 20161121
  Transmission Date: 20170206
  Serious: No
  Sender: FDA-Public Use
  Company Number: US-JNJFOC-20150716840

PATIENT
  Age: 77 Year
  Sex: Female

DRUGS (7)
  1. HYDROCHLOROTHIAZIDE. [Concomitant]
     Active Substance: HYDROCHLOROTHIAZIDE
  2. AMOXICILLIN. [Concomitant]
     Active Substance: AMOXICILLIN
  3. NASONEX [Concomitant]
     Active Substance: MOMETASONE FUROATE
  4. PRILOSEC [Concomitant]
     Active Substance: OMEPRAZOLE MAGNESIUM
  5. AMIODARONE [Concomitant]
     Active Substance: AMIODARONE
  6. IMBRUVICA [Suspect]
     Active Substance: IBRUTINIB
     Indication: CHRONIC LYMPHOCYTIC LEUKAEMIA
     Route: 048
     Dates: start: 20140716
  7. XARELTO [Concomitant]
     Active Substance: RIVAROXABAN

REACTIONS (8)
  - Functional gastrointestinal disorder [Unknown]
  - Anaemia [Unknown]
  - Incorrect dose administered [Not Recovered/Not Resolved]
  - Dysphonia [Unknown]
  - Contusion [Unknown]
  - Off label use [Not Recovered/Not Resolved]
  - Fatigue [Unknown]
  - Aphonia [Unknown]

NARRATIVE: CASE EVENT DATE: 20140716
